FAERS Safety Report 24913210 (Version 3)
Quarter: 2025Q4

REPORT INFORMATION
  Report Type: Report from Study
  Country: CA (occurrence: CA)
  Receive Date: 20250201
  Receipt Date: 20251229
  Transmission Date: 20260118
  Serious: Yes (Hospitalization)
  Sender: ABBVIE
  Company Number: CA-ABBVIE-6104604

PATIENT
  Age: 93 Year
  Sex: Male

DRUGS (3)
  1. LUPRON [Suspect]
     Active Substance: LEUPROLIDE ACETATE
     Indication: Prostate cancer
     Dosage: LAST DOSE DATE: 26 SEP 2024
     Route: 030
     Dates: start: 20200422
  2. LUPRON [Suspect]
     Active Substance: LEUPROLIDE ACETATE
     Dosage: FORM STRENGTH: 30 MILLIGRAM
     Route: 065
  3. LUPRON [Suspect]
     Active Substance: LEUPROLIDE ACETATE
     Dosage: FORM STRENGTH: 30 MILLIGRAM
     Route: 065

REACTIONS (10)
  - Urinary retention [Unknown]
  - General physical health deterioration [Unknown]
  - Haematuria [Unknown]
  - Abdominal discomfort [Unknown]
  - Urinary incontinence [Not Recovered/Not Resolved]
  - Mobility decreased [Not Recovered/Not Resolved]
  - Hypersomnia [Unknown]
  - Mental disorder [Unknown]
  - Physical disability [Unknown]
  - Memory impairment [Unknown]

NARRATIVE: CASE EVENT DATE: 20250101
